FAERS Safety Report 5266380-2 (Version None)
Quarter: 2007Q1

REPORT INFORMATION
  Report Type: 
  Country: None (occurrence: None)
  Receive Date: 20070315
  Receipt Date: 20070301
  Transmission Date: 20070707
  Serious: Yes (Other)
  Sender: FDA-Public Use
  Company Number: JP-ELI_LILLY_AND_COMPANY-JP200702001730

PATIENT
  Age: 73 Year
  Sex: Female
  Weight: 44 kg

DRUGS (20)
  1. PEMETREXED [Suspect]
     Indication: PLEURAL MESOTHELIOMA MALIGNANT
     Dosage: 650 MG, OTHER
     Route: 042
     Dates: start: 20070207
  2. CISPLATIN [Suspect]
     Indication: PLEURAL MESOTHELIOMA MALIGNANT
     Dosage: 100 MG, OTHER
     Route: 042
     Dates: start: 20070207
  3. FOLIC ACID [Concomitant]
     Indication: PROPHYLAXIS
     Dosage: 0.5 MG, DAILY (1/D)
     Route: 048
     Dates: start: 20070130
  4. HYDROXOCOBALAMIN ACETATE [Concomitant]
     Indication: PROPHYLAXIS
     Dosage: 1 MG, DAILY (1/D)
     Route: 030
     Dates: start: 20070130
  5. DECADRON /CAN/ [Concomitant]
     Dosage: 8 MG, UNK
     Dates: start: 20070207, end: 20070209
  6. PRIMPERAN /00041901/ [Concomitant]
     Dosage: UNK, UNKNOWN
     Route: 065
     Dates: start: 20070207, end: 20070209
  7. PREDNISOLONE [Concomitant]
     Indication: ASTHMA
     Dosage: 5-10 MG, UNK
     Route: 048
  8. AZELASTINE HCL [Concomitant]
     Indication: ASTHMA
     Dosage: 4 MG, DAILY (1/D)
     Route: 048
  9. THEO-DUR [Concomitant]
     Indication: ASTHMA
     Dosage: 200 MG, DAILY (1/D)
     Route: 048
  10. SINGULAIR [Concomitant]
     Indication: ASTHMA
     Dosage: 10 MG, DAILY (1/D)
     Route: 048
  11. GASTER D [Concomitant]
     Indication: REFLUX OESOPHAGITIS
     Dosage: 20 MG, DAILY (1/D)
     Route: 048
  12. CALCIUM LACTATE [Concomitant]
     Indication: OSTEOPOROSIS
     Dosage: 1 G, DAILY (1/D)
     Route: 048
  13. ALFAROL [Concomitant]
     Indication: OSTEOPOROSIS
     Dosage: 0.5 UG, DAILY (1/D)
     Route: 048
  14. AMLODIN [Concomitant]
     Indication: HYPERTENSION
     Dosage: 5 MG, DAILY (1/D)
     Route: 048
  15. BONALON [Concomitant]
     Indication: OSTEOPOROSIS
     Dosage: 5 MG, DAILY (1/D)
     Route: 048
  16. POLARAMINE [Concomitant]
     Indication: ASTHMA
     Dosage: 6 MG, DAILY (1/D)
     Route: 048
  17. MYSLEE [Concomitant]
     Indication: INSOMNIA
     Dosage: 5 MG, DAILY (1/D)
     Route: 048
  18. DEPAS [Concomitant]
     Indication: INSOMNIA
     Dosage: 1 MG, DAILY (1/D)
     Route: 048
  19. NITRAZEPAM [Concomitant]
     Indication: INSOMNIA
     Dosage: 5 MG, DAILY (1/D)
     Route: 048
  20. HOKUNALIN [Concomitant]
     Indication: ASTHMA
     Dosage: 2 MG, DAILY (1/D)
     Route: 048

REACTIONS (1)
  - HEPATIC FUNCTION ABNORMAL [None]
